FAERS Safety Report 10382146 (Version 1)
Quarter: 2014Q3

REPORT INFORMATION
  Report Type: Spontaneous
  Country: FR (occurrence: None)
  Receive Date: 20140811
  Receipt Date: 20140811
  Transmission Date: 20150326
  Serious: Yes (Hospitalization)
  Sender: FDA-Public Use
  Company Number: AXC-2014-000473

PATIENT
  Age: 88 Year
  Sex: Male

DRUGS (17)
  1. BEROCCA [Suspect]
     Active Substance: VITAMINS
     Indication: PRODUCT USED FOR UNKNOWN INDICATION
     Route: 048
     Dates: start: 20140403, end: 20140406
  2. VENTOLINE [Concomitant]
     Active Substance: ALBUTEROL
  3. SPIRIVA [Concomitant]
     Active Substance: TIOTROPIUM BROMIDE MONOHYDRATE
  4. CARBOSYMAG /01711031/ (CHARCOAL, ACTIVATED, MAGNESIUM OXIDE, SIMETICONE) [Suspect]
     Active Substance: ACTIVATED CHARCOAL\MAGNESIUM OXIDE\SIMETHICONE
     Indication: ABDOMINAL PAIN UPPER
     Route: 048
     Dates: start: 20140403, end: 20140406
  5. PERMIXON [Concomitant]
     Active Substance: SAW PALMETTO
  6. ALLOPURINOL. [Concomitant]
     Active Substance: ALLOPURINOL
  7. PRAVADUAL [Concomitant]
     Active Substance: ASPIRIN\PRAVASTATIN
  8. LEVOTHYROX (LEVOTHYROXINE SODIUM) [Concomitant]
     Active Substance: LEVOTHYROXINE SODIUM
  9. URSODEOXYCHOLIC ACID [Suspect]
     Active Substance: URSODIOL
     Indication: LIVER DISORDER
     Route: 048
     Dates: start: 20140403, end: 20140406
  10. ONBREZ BREEZHALER [Concomitant]
     Active Substance: INDACATEROL
  11. AMIODARONE /00133102/ (AMIODARONE HYDROCHLORIDE) [Concomitant]
     Active Substance: AMIODARONE
  12. BACLOFEN (BACLOFEN) UNKNOWN [Suspect]
     Active Substance: BACLOFEN
     Indication: MUSCLE SPASTICITY
     Route: 048
     Dates: start: 20140403, end: 20140406
  13. OMEPRAZOLE. [Concomitant]
     Active Substance: OMEPRAZOLE
  14. METOPROLOL [Concomitant]
     Active Substance: METOPROLOL
  15. ADANCOR [Concomitant]
     Active Substance: NICORANDIL
  16. PERINDOPRIL [Concomitant]
     Active Substance: PERINDOPRIL
  17. METEOXANE [Concomitant]
     Active Substance: AMOBARBITAL\BELLADONNA LEAF\DIMETHICONE\ERGOTAMINE TARTRATE

REACTIONS (2)
  - Confusional state [None]
  - Disorientation [None]

NARRATIVE: CASE EVENT DATE: 20140405
